FAERS Safety Report 4804116-7 (Version None)
Quarter: 2005Q4

REPORT INFORMATION
  Report Type: 
  Country: None (occurrence: None)
  Receive Date: 20051014
  Receipt Date: 20051005
  Transmission Date: 20060501
  Serious: Yes (Hospitalization)
  Sender: FDA-Public Use
  Company Number: TPA2005A01189

PATIENT
  Age: 60 Year
  Sex: Female

DRUGS (1)
  1. ACTOS [Suspect]
     Dosage: UNK., UNKNOWN, PER ORAL
     Route: 048

REACTIONS (1)
  - WEIGHT INCREASED [None]
